FAERS Safety Report 4379749-5 (Version None)
Quarter: 2004Q2

REPORT INFORMATION
  Report Type: 
  Country: None (occurrence: None)
  Receive Date: 20040617
  Receipt Date: 20040604
  Transmission Date: 20050107
  Serious: Yes (Other)
  Sender: FDA-Public Use
  Company Number: SE-GLAXOSMITHKLINE-B0335591A

PATIENT
  Age: 80 Year
  Sex: Female

DRUGS (8)
  1. AVANDIA [Suspect]
     Dosage: 4MG PER DAY
     Route: 048
     Dates: start: 20031106, end: 20040108
  2. MINDIAB [Concomitant]
     Dosage: 5MG PER DAY
     Route: 065
  3. SIMVASTATIN [Concomitant]
     Dosage: 40MG PER DAY
     Route: 065
  4. NORVASC [Concomitant]
     Dosage: 5MG PER DAY
     Route: 065
  5. LEVAXIN [Concomitant]
     Dosage: 50MCG PER DAY
     Route: 065
  6. TENORMIN [Concomitant]
     Dosage: 50MG PER DAY
     Route: 065
  7. FUROSEMIDE [Concomitant]
     Dosage: 60MG PER DAY
     Route: 065
  8. TROMBYL [Concomitant]
     Dosage: 75MG PER DAY
     Route: 065

REACTIONS (6)
  - CARDIAC FAILURE [None]
  - DYSPNOEA [None]
  - EJECTION FRACTION DECREASED [None]
  - OEDEMA PERIPHERAL [None]
  - RALES [None]
  - WEIGHT INCREASED [None]
